FAERS Safety Report 6876367-1 (Version None)
Quarter: 2010Q3

REPORT INFORMATION
  Report Type: 
  Country: None (occurrence: None)
  Receive Date: 20100727
  Receipt Date: 20100722
  Transmission Date: 20110219
  Serious: Yes (Life-Threatening)
  Sender: FDA-Public Use
  Company Number: IT-BAYER-201027732GPV

PATIENT
  Age: 41 Year
  Sex: Female

DRUGS (2)
  1. CIPROXIN [Suspect]
     Indication: CYSTITIS
     Dosage: UNIT DOSE: 250 MG
     Route: 048
     Dates: start: 20100528, end: 20100602
  2. BUSCOPAN [Concomitant]
     Indication: ABDOMINAL PAIN LOWER
     Route: 048
     Dates: start: 20100602, end: 20100602

REACTIONS (5)
  - ACUTE HEPATIC FAILURE [None]
  - AGGRESSION [None]
  - AGITATION [None]
  - HETEROPHORIA [None]
  - MYDRIASIS [None]
